FAERS Safety Report 4375507-6 (Version None)
Quarter: 2004Q2

REPORT INFORMATION
  Report Type: 
  Country: None (occurrence: None)
  Receive Date: 20040607
  Receipt Date: 20040524
  Transmission Date: 20050107
  Serious: Yes (Death)
  Sender: FDA-Public Use
  Company Number: R301035-PAP-USA

PATIENT
  Age: 67 Year
  Sex: Female

DRUGS (9)
  1. ACIPHEX [Suspect]
     Dosage: ORAL
     Route: 048
  2. FLEXERIL (CYCLOBENAZAPRINE HYDROCHLORIDE) [Concomitant]
  3. LASIX [Concomitant]
  4. OXYGEN [Concomitant]
  5. KLOR-CON M20 (POTASSIUM CHLORIDE) [Concomitant]
  6. MONISTAT 7 (MICONAZOLE NITRATE) [Concomitant]
  7. ALBUTEROL [Concomitant]
  8. PROCHLORPERAZINE MALEATE [Concomitant]
  9. LANOXIN [Concomitant]

REACTIONS (1)
  - DEATH [None]
